FAERS Safety Report 4517184-7 (Version None)
Quarter: 2004Q4

REPORT INFORMATION
  Report Type: 
  Country: None (occurrence: None)
  Receive Date: 20041202
  Receipt Date: 20041015
  Transmission Date: 20050328
  Serious: Yes (Hospitalization)
  Sender: FDA-Public Use
  Company Number: GB-MERCK-0410GBR00183

PATIENT
  Age: 67 Year
  Sex: Female
  Weight: 78 kg

DRUGS (8)
  1. FOSAMAX [Suspect]
     Indication: OSTEOPOROSIS PROPHYLAXIS
     Route: 048
     Dates: start: 20040622, end: 20040914
  2. CARVEDILOL [Concomitant]
     Route: 048
  3. LISINOPRIL [Concomitant]
     Route: 048
  4. FUROSEMIDE [Concomitant]
     Route: 065
  5. PREDNISOLONE [Concomitant]
     Indication: PEMPHIGUS
     Route: 048
     Dates: start: 20040528
  6. DIGOXIN [Concomitant]
     Route: 065
  7. OMEPRAZOLE [Concomitant]
     Route: 065
  8. WARFARIN [Concomitant]
     Route: 065

REACTIONS (2)
  - CEREBRAL ISCHAEMIA [None]
  - CONFUSIONAL STATE [None]
